FAERS Safety Report 20764020 (Version 1)
Quarter: 2022Q2

REPORT INFORMATION
  Report Type: Spontaneous
  Country: US (occurrence: None)
  Receive Date: 20220428
  Receipt Date: 20220428
  Transmission Date: 20220721
  Serious: Yes (Hospitalization)
  Sender: FDA-Public Use
  Company Number: None

PATIENT
  Age: 72 Year
  Sex: Male

DRUGS (1)
  1. ABIRATERONE [Suspect]
     Active Substance: ABIRATERONE
     Dosage: FREQUENCY : DAILY;?
     Route: 048
     Dates: start: 202107

REACTIONS (7)
  - Nausea [None]
  - Dizziness [None]
  - Fall [None]
  - Lip injury [None]
  - Oral contusion [None]
  - Lip haemorrhage [None]
  - Pyrexia [None]

NARRATIVE: CASE EVENT DATE: 20220421
